FAERS Safety Report 9152959 (Version 1)
Quarter: 2013Q1

REPORT INFORMATION
  Report Type: Spontaneous
  Country: US (occurrence: US)
  Receive Date: 20130211
  Receipt Date: 20130211
  Transmission Date: 20140127
  Serious: Yes (Hospitalization, Other)
  Sender: FDA-Public Use
  Company Number: US-RB-049643-13

PATIENT
  Age: 33 Year
  Sex: Female

DRUGS (3)
  1. SUBOXONE TABLET [Suspect]
     Indication: DRUG DEPENDENCE
     Route: 060
     Dates: start: 2011, end: 20130126
  2. SUBOXONE TABLET [Suspect]
     Route: 060
     Dates: start: 20130127, end: 20130127
  3. INSULIN [Concomitant]
     Indication: DIABETES MELLITUS
     Dosage: SLIDING SCALE
     Route: 065

REACTIONS (3)
  - Hyperthyroidism [Recovered/Resolved]
  - Wrong technique in drug usage process [Recovered/Resolved]
  - Procedural pain [Not Recovered/Not Resolved]
